FAERS Safety Report 14285276 (Version 1)
Quarter: 2017Q4

REPORT INFORMATION
  Report Type: Spontaneous
  Country: US (occurrence: US)
  Receive Date: 20171214
  Receipt Date: 20171214
  Transmission Date: 20180321
  Serious: Yes (Other)
  Sender: FDA-Public Use
  Company Number: US-AMGEN-USASP2017183222

PATIENT
  Sex: Female

DRUGS (1)
  1. PROLIA [Suspect]
     Active Substance: DENOSUMAB
     Indication: OSTEOPOROSIS POSTMENOPAUSAL
     Dosage: 60 MG,
     Route: 065
     Dates: start: 201702, end: 201708

REACTIONS (11)
  - Anaemia [Unknown]
  - Paraesthesia [Unknown]
  - Asthenia [Unknown]
  - Gastrointestinal hypomotility [Unknown]
  - Decreased appetite [Unknown]
  - Hypophagia [Unknown]
  - Abdominal discomfort [Unknown]
  - Balance disorder [Unknown]
  - Fatigue [Not Recovered/Not Resolved]
  - Gait disturbance [Unknown]
  - Condition aggravated [Unknown]

NARRATIVE: CASE EVENT DATE: 2017
